FAERS Safety Report 4890684-6 (Version None)
Quarter: 2006Q1

REPORT INFORMATION
  Report Type: 
  Country: None (occurrence: None)
  Receive Date: 20060125
  Receipt Date: 20060117
  Transmission Date: 20060701
  Serious: Yes (Hospitalization)
  Sender: FDA-Public Use
  Company Number: US-BOEHRINGER INGELHEIM PHARMACEUTICALS, INC.-2006-BP-00593BP

PATIENT
  Age: 22 Year
  Sex: Female

DRUGS (5)
  1. ATROVENT HFA [Suspect]
     Indication: ASTHMA
     Route: 055
     Dates: start: 20060109
  2. ATROVENT HFA [Suspect]
     Indication: DYSPNOEA
  3. ATROVENT HFA [Suspect]
     Indication: WHEEZING
  4. EDETATE DISODIUM [Concomitant]
     Indication: ASTHMA
     Route: 055
  5. ALBUTEROL SULFATE AUTOHALER [Concomitant]
     Indication: ASTHMA
     Route: 055

REACTIONS (2)
  - DRUG INEFFECTIVE [None]
  - RESPIRATORY DISTRESS [None]
